FAERS Safety Report 20862681 (Version 1)
Quarter: 2022Q2

REPORT INFORMATION
  Report Type: Spontaneous
  Country: JP (occurrence: JP)
  Receive Date: 20220523
  Receipt Date: 20220523
  Transmission Date: 20220721
  Serious: Yes (Other)
  Sender: FDA-Public Use
  Company Number: JP-PFIZER INC-202200714274

PATIENT
  Age: 3 Month
  Sex: Female
  Weight: 5.2 kg

DRUGS (4)
  1. AMPICILLIN SODIUM\SULBACTAM SODIUM [Suspect]
     Active Substance: AMPICILLIN SODIUM\SULBACTAM SODIUM
     Dosage: 150 MG/KG, DAILY
     Dates: start: 20210316, end: 20210330
  2. DOPAMINE HYDROCHLORIDE [Concomitant]
     Active Substance: DOPAMINE HYDROCHLORIDE
     Indication: Cardiovascular disorder
     Dosage: 7 UG/KG/MIN
     Dates: start: 20210315
  3. DOBUTAMINE HYDROCHLORIDE [Concomitant]
     Active Substance: DOBUTAMINE HYDROCHLORIDE
     Indication: Cardiovascular disorder
     Dosage: 3.5 UG/KG/MIN
     Dates: start: 20210315
  4. SODIUM BICARBONATE [Concomitant]
     Active Substance: SODIUM BICARBONATE
     Indication: Metabolic acidosis
     Dosage: UNK
     Dates: start: 20210315, end: 20210317

REACTIONS (5)
  - C-reactive protein increased [Unknown]
  - Candida infection [Recovered/Resolved]
  - Renal impairment [Unknown]
  - Generalised oedema [Unknown]
  - Hepatic function abnormal [Unknown]

NARRATIVE: CASE EVENT DATE: 20210317
